FAERS Safety Report 19423241 (Version 1)
Quarter: 2021Q2

REPORT INFORMATION
  Report Type: Spontaneous
  Country: US (occurrence: US)
  Receive Date: 20210616
  Receipt Date: 20210616
  Transmission Date: 20210717
  Serious: Yes (Other)
  Sender: FDA-Public Use
  Company Number: None

PATIENT
  Age: 11 Year
  Sex: Female
  Weight: 28.8 kg

DRUGS (5)
  1. QELBREE [Concomitant]
     Active Substance: VILOXAZINE HYDROCHLORIDE
  2. MULTI?VITAMIN  QD [Concomitant]
  3. XYZAL [Concomitant]
     Active Substance: LEVOCETIRIZINE DIHYDROCHLORIDE
  4. VYVANSE [Suspect]
     Active Substance: LISDEXAMFETAMINE DIMESYLATE
     Indication: ATTENTION DEFICIT HYPERACTIVITY DISORDER
     Dosage: QUANTITY:1 CAPSULE(S);?
     Route: 048
     Dates: start: 20210501, end: 20210530
  5. ZOLOFT [Concomitant]
     Active Substance: SERTRALINE HYDROCHLORIDE

REACTIONS (8)
  - Skin injury [None]
  - Insomnia [None]
  - Anger [None]
  - Skin haemorrhage [None]
  - Aggression [None]
  - Intentional self-injury [None]
  - Suicidal ideation [None]
  - Skin irritation [None]

NARRATIVE: CASE EVENT DATE: 20210529
